FAERS Safety Report 19762811 (Version 2)
Quarter: 2021Q3

REPORT INFORMATION
  Report Type: Spontaneous
  Country: ES (occurrence: ES)
  Receive Date: 20210830
  Receipt Date: 20210907
  Transmission Date: 20211014
  Serious: Yes (Other)
  Sender: FDA-Public Use
  Company Number: US-MTPC-MTDA2021-0020761

PATIENT
  Age: 70 Year
  Sex: Male

DRUGS (1)
  1. RILUZOLE. [Suspect]
     Active Substance: RILUZOLE
     Indication: AMYOTROPHIC LATERAL SCLEROSIS
     Dosage: UNK
     Route: 065

REACTIONS (5)
  - Parkinsonism [Unknown]
  - Supranuclear palsy [Unknown]
  - Cognitive disorder [Unknown]
  - Quadriparesis [Unknown]
  - Speech disorder [Unknown]
